FAERS Safety Report 6505862-X (Version None)
Quarter: 2009Q4

REPORT INFORMATION
  Report Type: 
  Country: None (occurrence: None)
  Receive Date: 20091218
  Receipt Date: 20091211
  Transmission Date: 20100525
  Serious: Yes (Other)
  Sender: FDA-Public Use
  Company Number: BR-BRISTOL-MYERS SQUIBB COMPANY-14895429

PATIENT
  Age: 55 Year
  Sex: Male

DRUGS (1)
  1. APROZIDE [Suspect]
     Indication: HYPERTENSION
     Dosage: 1 DF = 1 TAB(300MG/12.5MG)
     Route: 048
     Dates: start: 20091001

REACTIONS (4)
  - DRUG INEFFECTIVE [None]
  - DYSURIA [None]
  - HYPERTENSION [None]
  - URETHRAL OBSTRUCTION [None]
